FAERS Safety Report 7742428-8 (Version None)
Quarter: 2011Q3

REPORT INFORMATION
  Report Type: 
  Country: None (occurrence: None)
  Receive Date: 20110907
  Receipt Date: 20110907
  Transmission Date: 20111222
  Serious: Yes (Hospitalization)
  Sender: FDA-Public Use
  Company Number: None

PATIENT
  Age: 78 Year
  Sex: Female
  Weight: 84.36 kg

DRUGS (12)
  1. DECITABINE [Suspect]
     Indication: MYELODYSPLASTIC SYNDROME
     Dosage: 0.2/KG 3X/WK SUB-Q INJ 2X/WEEK
     Route: 058
     Dates: start: 20110802, end: 20110829
  2. SENNOSIDES-DOCUSATE [Concomitant]
  3. OXYCODONE HCL [Concomitant]
  4. CENTRUM SILVER [Concomitant]
  5. NITROSTAT [Concomitant]
  6. ACYCLOVIR [Concomitant]
  7. PRILOSEC [Concomitant]
  8. CIPROFLOXACIN [Concomitant]
  9. MEVACOR [Concomitant]
  10. COZAAR [Concomitant]
  11. ATENOLOL [Concomitant]
  12. PROZAC [Concomitant]

REACTIONS (1)
  - FEBRILE NEUTROPENIA [None]
